FAERS Safety Report 8314239 (Version 2)
Quarter: 2013Q4

REPORT INFORMATION
  Report Type: Spontaneous
  Country: US (occurrence: US)
  Receive Date: 20111228
  Receipt Date: 20131230
  Transmission Date: 20140711
  Serious: Yes (Death, Hospitalization)
  Sender: FDA-Public Use
  Company Number: US-GLAXOSMITHKLINE-A0931063A

PATIENT
  Age: 63 Year
  Sex: Female
  Weight: 95.5 kg

DRUGS (1)
  1. AVANDIA [Suspect]
     Indication: DIABETES MELLITUS
     Dosage: 4MG PER DAY
     Route: 048
     Dates: start: 20010421, end: 20061221

REACTIONS (5)
  - Cardio-respiratory arrest [Fatal]
  - Cardiac failure congestive [Unknown]
  - Myocardial infarction [Unknown]
  - Atrial fibrillation [Unknown]
  - Ventricular fibrillation [Unknown]
